FAERS Safety Report 5805856-3 (Version None)
Quarter: 2008Q3

REPORT INFORMATION
  Report Type: 
  Country: None (occurrence: None)
  Receive Date: 20080710
  Receipt Date: 20080708
  Transmission Date: 20090109
  Serious: Yes (Other)
  Sender: FDA-Public Use
  Company Number: DE-BRISTOL-MYERS SQUIBB COMPANY-14254445

PATIENT

DRUGS (1)
  1. HYDROXYUREA [Suspect]

REACTIONS (2)
  - PARKINSON'S DISEASE [None]
  - VITILIGO [None]
